FAERS Safety Report 9612012 (Version 1)
Quarter: 2013Q4

REPORT INFORMATION
  Report Type: Spontaneous
  Country: US (occurrence: US)
  Receive Date: 20131010
  Receipt Date: 20131010
  Transmission Date: 20140711
  Serious: Yes (Other)
  Sender: FDA-Public Use
  Company Number: US-AMGEN-USASP2013070437

PATIENT
  Sex: Female

DRUGS (4)
  1. PROLIA [Suspect]
     Indication: OSTEOPOROSIS POSTMENOPAUSAL
     Dosage: UNK
     Route: 065
     Dates: start: 2011
  2. CALCIUM [Concomitant]
     Dosage: UNK UNK, QD
  3. CALTRATE                           /00944201/ [Concomitant]
     Dosage: UNK UNK, QD
  4. MULTIVITAMINS, PLAIN [Concomitant]

REACTIONS (18)
  - Activities of daily living impaired [Unknown]
  - Muscle tightness [Unknown]
  - Muscle strain [Unknown]
  - Abdominal discomfort [Unknown]
  - Pain [Not Recovered/Not Resolved]
  - Gait disturbance [Unknown]
  - Chills [Unknown]
  - Pyrexia [Unknown]
  - Hyperhidrosis [Unknown]
  - Sleep disorder due to general medical condition, insomnia type [Unknown]
  - Dysstasia [Unknown]
  - Back pain [Not Recovered/Not Resolved]
  - Myalgia [Not Recovered/Not Resolved]
  - Muscle swelling [Unknown]
  - Sciatica [Unknown]
  - Asthenia [Unknown]
  - Fatigue [Unknown]
  - Pain in extremity [Not Recovered/Not Resolved]
